FAERS Safety Report 14877151 (Version 2)
Quarter: 2018Q4

REPORT INFORMATION
  Report Type: Report from Study
  Country: ES (occurrence: ES)
  Receive Date: 20180510
  Receipt Date: 20181010
  Transmission Date: 20190204
  Serious: Yes (Life-Threatening, Hospitalization)
  Sender: FDA-Public Use
  Company Number: PHHO2013ES008028

PATIENT

DRUGS (12)
  1. AZACITIDINE. [Suspect]
     Active Substance: AZACITIDINE
     Indication: MYELODYSPLASTIC SYNDROME
     Dosage: 75 MG/M2, UNK
     Route: 065
     Dates: start: 20121029, end: 20121104
  2. LBH589 [Suspect]
     Active Substance: PANOBINOSTAT
     Indication: MYELODYSPLASTIC SYNDROME
     Dosage: 30 MG, QD
     Route: 048
     Dates: start: 20121031, end: 20121107
  3. OMEPRAZOLE. [Concomitant]
     Active Substance: OMEPRAZOLE
     Indication: PROPHYLAXIS
     Dosage: 20 MG, QD
     Route: 048
  4. PREDNISONE. [Concomitant]
     Active Substance: PREDNISONE
     Dosage: UNK
     Dates: start: 20121218
  5. VALSARTAN. [Concomitant]
     Active Substance: VALSARTAN
     Indication: HYPERTENSION
     Dosage: 160 MG, QD
     Route: 048
     Dates: start: 200601
  6. LATANOPROST. [Concomitant]
     Active Substance: LATANOPROST
     Indication: GLAUCOMA
     Dosage: 2 DROPS, QD
     Route: 048
     Dates: start: 200912
  7. SUNIDERMA [Concomitant]
     Indication: DERMATITIS
     Dosage: AS NEEDED
     Dates: start: 20121106
  8. LOVASTATINA [Concomitant]
     Active Substance: LOVASTATIN
     Indication: DYSLIPIDAEMIA
     Dosage: 40 MG, QD
     Route: 048
     Dates: start: 200403
  9. PREDNISONE. [Concomitant]
     Active Substance: PREDNISONE
     Indication: DERMATITIS
     Dosage: 2.5 MG, QD
     Route: 048
     Dates: start: 20121004, end: 20121217
  10. ATENOLOL. [Concomitant]
     Active Substance: ATENOLOL
     Indication: HYPERTENSION
     Dosage: 50 MG, QD
     Route: 048
     Dates: start: 200601
  11. FUROSEMIDE. [Concomitant]
     Active Substance: FUROSEMIDE
     Indication: CHRONIC KIDNEY DISEASE
     Dosage: 40 MG, QD
     Route: 048
     Dates: start: 200802
  12. TEBETANE COMPUESTO [Concomitant]
     Indication: HYSTERECTOMY
     Dosage: 4COM, QD
     Route: 048
     Dates: start: 198301

REACTIONS (1)
  - Febrile neutropenia [Recovered/Resolved]

NARRATIVE: CASE EVENT DATE: 20121108
